FAERS Safety Report 14058275 (Version 1)
Quarter: 2017Q4

REPORT INFORMATION
  Report Type: Spontaneous
  Country: PH (occurrence: PH)
  Receive Date: 20171006
  Receipt Date: 20171006
  Transmission Date: 20180321
  Serious: Yes (Other)
  Sender: FDA-Public Use
  Company Number: PH-009507513-1710PHL003221

PATIENT
  Sex: Male

DRUGS (1)
  1. JANUMET [Suspect]
     Active Substance: METFORMIN HYDROCHLORIDE\SITAGLIPTIN PHOSPHATE
     Dosage: 50/500MG ONCE A DAY
     Route: 048

REACTIONS (4)
  - Diabetes mellitus [Unknown]
  - Inappropriate schedule of drug administration [Unknown]
  - Cerebrovascular accident [Recovering/Resolving]
  - Adverse event [Recovered/Resolved with Sequelae]

NARRATIVE: CASE EVENT DATE: 201701
